FAERS Safety Report 14355360 (Version 4)
Quarter: 2018Q4

REPORT INFORMATION
  Report Type: Report from Study
  Country: CN (occurrence: CN)
  Receive Date: 20180105
  Receipt Date: 20181102
  Transmission Date: 20190204
  Serious: Yes (Death, Other)
  Sender: FDA-Public Use
  Company Number: CN-ASTELLAS-2017US031759

PATIENT
  Age: 45 Year
  Sex: Male

DRUGS (1)
  1. ERLOTINIB [Suspect]
     Active Substance: ERLOTINIB
     Indication: NON-SMALL CELL LUNG CANCER
     Dosage: 150 MG, ONCE DAILY (MOST RECENT DOSE RECEIVED ON 11/MAY/2017 PRIOR TO LIVER DAMAGEMOST RECENT DOSE )
     Route: 048
     Dates: start: 20170420

REACTIONS (2)
  - Respiratory failure [Fatal]
  - Liver injury [Unknown]

NARRATIVE: CASE EVENT DATE: 20170511
